FAERS Safety Report 8452508-X (Version None)
Quarter: 2012Q2

REPORT INFORMATION
  Report Type: 
  Country: None (occurrence: None)
  Receive Date: 20120620
  Receipt Date: 20120611
  Transmission Date: 20120825
  Serious: Yes (Other)
  Sender: FDA-Public Use
  Company Number: US-ASTRAZENECA-2012SE38897

PATIENT

DRUGS (4)
  1. PROVENGE [Concomitant]
  2. ALPHARADIN [Concomitant]
  3. CASODEX [Suspect]
     Route: 048
  4. LHRH [Concomitant]

REACTIONS (1)
  - DISEASE PROGRESSION [None]
